FAERS Safety Report 9054591 (Version 3)
Quarter: 2016Q4

REPORT INFORMATION
  Report Type: Spontaneous
  Country: US (occurrence: US)
  Receive Date: 20130208
  Receipt Date: 20161005
  Transmission Date: 20170207
  Serious: No
  Sender: FDA-Public Use
  Company Number: US-ASTRAZENECA-2005UW09160

PATIENT
  Age: 73 Year
  Sex: Female
  Weight: 48.5 kg

DRUGS (12)
  1. HIGH BLOOD PRESSURE MEDICATION [Concomitant]
     Active Substance: UNSPECIFIED INGREDIENT
  2. NEXIUM [Suspect]
     Active Substance: ESOMEPRAZOLE MAGNESIUM
     Indication: GASTRITIS
     Route: 048
     Dates: start: 2001
  3. NEXIUM 24HR [Suspect]
     Active Substance: ESOMEPRAZOLE MAGNESIUM
     Indication: GASTRITIS
     Dosage: TWO, DAILY AND DOUBLE THE DOSE
     Route: 048
  4. THENAVENT [Concomitant]
  5. NEXIUM 24HR [Suspect]
     Active Substance: ESOMEPRAZOLE MAGNESIUM
     Indication: GASTROOESOPHAGEAL REFLUX DISEASE
     Dosage: TWO, DAILY AND DOUBLE THE DOSE
     Route: 048
  6. NEXIUM [Suspect]
     Active Substance: ESOMEPRAZOLE MAGNESIUM
     Indication: GASTROOESOPHAGEAL REFLUX DISEASE
     Route: 048
     Dates: start: 2001
  7. NEXIUM [Suspect]
     Active Substance: ESOMEPRAZOLE MAGNESIUM
     Indication: GASTROOESOPHAGEAL REFLUX DISEASE
     Route: 048
     Dates: start: 2001
  8. BIAXIN [Suspect]
     Active Substance: CLARITHROMYCIN
     Indication: SINUSITIS
     Dosage: NON AZ PRODUCT
     Route: 065
  9. ASA [Concomitant]
     Active Substance: ASPIRIN
  10. ENTEX LA [Concomitant]
     Active Substance: GUAIFENESIN\PHENYLEPHRINE HYDROCHLORIDE
  11. LIBRIUM [Concomitant]
     Active Substance: CHLORDIAZEPOXIDE HYDROCHLORIDE
     Route: 065
  12. VITAMIN B12 [Concomitant]
     Active Substance: CYANOCOBALAMIN
     Dosage: SHOT ONCE A MONTH

REACTIONS (9)
  - Sinusitis [Unknown]
  - Vitamin B12 deficiency [Unknown]
  - Eructation [Unknown]
  - Rash [Unknown]
  - Tongue discolouration [Unknown]
  - Malaise [Unknown]
  - Flatulence [Unknown]
  - Drug ineffective [Unknown]
  - Bronchitis [Unknown]

NARRATIVE: CASE EVENT DATE: 200707
